FAERS Safety Report 12567076 (Version 3)
Quarter: 2016Q4

REPORT INFORMATION
  Report Type: Spontaneous
  Country: IT (occurrence: IT)
  Receive Date: 20160718
  Receipt Date: 20161007
  Transmission Date: 20170207
  Serious: Yes (Other)
  Sender: FDA-Public Use
  Company Number: IT-PFIZER INC-2016347017

PATIENT
  Age: 34 Year
  Sex: Male

DRUGS (2)
  1. XANAX [Suspect]
     Active Substance: ALPRAZOLAM
     Indication: ANXIETY
     Dosage: 2 DF, TOTAL
     Route: 048
     Dates: start: 20150407, end: 20150407
  2. PAROXETINE. [Suspect]
     Active Substance: PAROXETINE
     Indication: ANXIETY
     Dosage: 6 DF, TOTAL
     Route: 048
     Dates: start: 20150407, end: 20150407

REACTIONS (3)
  - Agitation [Unknown]
  - Anxiety [Unknown]
  - Drug abuse [Unknown]

NARRATIVE: CASE EVENT DATE: 20150408
